FAERS Safety Report 8423211-7 (Version None)
Quarter: 2012Q2

REPORT INFORMATION
  Report Type: 
  Country: None (occurrence: None)
  Receive Date: 20120608
  Receipt Date: 20120531
  Transmission Date: 20120825
  Serious: Yes (Life-Threatening, Hospitalization)
  Sender: FDA-Public Use
  Company Number: US-JNJFOC-20120520094

PATIENT
  Sex: Male
  Weight: 70.9 kg

DRUGS (4)
  1. MESALAMINE [Concomitant]
     Route: 048
  2. OMEPRAZOLE [Concomitant]
  3. REMICADE [Suspect]
     Indication: COLITIS ULCERATIVE
     Route: 042
     Dates: start: 20111201
  4. REMICADE [Suspect]
     Route: 042
     Dates: start: 20070901

REACTIONS (2)
  - COLITIS ULCERATIVE [None]
  - SERUM SICKNESS [None]
